FAERS Safety Report 9553234 (Version 1)
Quarter: 2013Q3

REPORT INFORMATION
  Report Type: Spontaneous
  Country: US (occurrence: None)
  Receive Date: 20130724
  Receipt Date: 20130724
  Transmission Date: 20140515
  Serious: Yes (Hospitalization, Other)
  Sender: FDA-Public Use
  Company Number: PHEH2012US018676

PATIENT
  Age: 64 Year
  Sex: Male
  Weight: 84.3 kg

DRUGS (2)
  1. GLEEVEC (IMATINIB) UNKNOWN [Suspect]
     Indication: GASTRIC CANCER
     Dosage: 400 MG, DAILY, ORAL
     Route: 048
  2. BLOOD TRANSFUSION, AUXLIARY PRODUCTS (NO INGREDIENTS/SUBSTANCE) [Concomitant]

REACTIONS (3)
  - Pulmonary embolism [None]
  - Gastrointestinal haemorrhage [None]
  - Anaemia [None]
